FAERS Safety Report 24374504 (Version 1)
Quarter: 2024Q3

REPORT INFORMATION
  Report Type: Spontaneous
  Country: CA (occurrence: CA)
  Receive Date: 20240927
  Receipt Date: 20240927
  Transmission Date: 20241016
  Serious: Yes (Hospitalization, Other)
  Sender: MYLAN
  Company Number: CA-MYLANLABS-2024M1086824

PATIENT
  Sex: Male
  Weight: 3 kg

DRUGS (1)
  1. ZOLOFT [Suspect]
     Active Substance: SERTRALINE HYDROCHLORIDE
     Indication: Adjustment disorder
     Dosage: 125 MILLIGRAM, QD (1 EVERY 1 DAYS)
     Route: 048

REACTIONS (4)
  - Hypotonia [Unknown]
  - Respiratory disorder [Unknown]
  - Seizure [Unknown]
  - Withdrawal syndrome [Unknown]
